FAERS Safety Report 9248857 (Version 1)
Quarter: 2013Q2

REPORT INFORMATION
  Report Type: Spontaneous
  Country: US (occurrence: US)
  Receive Date: 20130423
  Receipt Date: 20130423
  Transmission Date: 20140414
  Serious: Yes (Other)
  Sender: FDA-Public Use
  Company Number: US-PFIZER INC-2013124630

PATIENT
  Age: 22 Year
  Sex: Female
  Weight: 56.7 kg

DRUGS (3)
  1. DEPO-PROVERA [Suspect]
     Indication: CONTRACEPTION
     Dosage: UNK, EVERY 3 MONTHS
     Dates: end: 201010
  2. DEPO-PROVERA [Suspect]
     Indication: MENSTRUATION IRREGULAR
     Dosage: UNK, EVERY 3 MONTHS
     Dates: start: 201011, end: 2012
  3. DEPO-PROVERA [Suspect]
     Dosage: UNK, EVERY 3 MONTHS
     Dates: start: 201206

REACTIONS (3)
  - Abortion spontaneous [Unknown]
  - Drug ineffective [Unknown]
  - Unintended pregnancy [Unknown]
